FAERS Safety Report 15729861 (Version 1)
Quarter: 2018Q4

REPORT INFORMATION
  Report Type: Spontaneous
  Country: GB (occurrence: GB)
  Receive Date: 20181217
  Receipt Date: 20181217
  Transmission Date: 20190205
  Serious: Yes (Other)
  Sender: FDA-Public Use
  Company Number: GB-MYLANLABS-2018M1092502

PATIENT
  Sex: Female

DRUGS (2)
  1. COCODAMOL [Suspect]
     Active Substance: ACETAMINOPHEN\CODEINE PHOSPHATE
     Indication: PAIN
     Dosage: 30/500 MG
  2. TRAMADOL. [Suspect]
     Active Substance: TRAMADOL
     Indication: PAIN
     Dosage: UNK

REACTIONS (4)
  - Drug ineffective [Unknown]
  - Exposure during pregnancy [Recovered/Resolved]
  - Fatigue [Unknown]
  - Drug dependence [Unknown]
